FAERS Safety Report 18979908 (Version 1)
Quarter: 2021Q1

REPORT INFORMATION
  Report Type: Other
  Country: CA (occurrence: CA)
  Receive Date: 20210308
  Receipt Date: 20210308
  Transmission Date: 20210420
  Serious: Yes (Hospitalization)
  Sender: FDA-Public Use
  Company Number: CA-MLV PHARMA LLC-000016

PATIENT
  Sex: Male

DRUGS (2)
  1. CETIRIZINE [Suspect]
     Active Substance: CETIRIZINE HYDROCHLORIDE
     Indication: RASH PRURITIC
     Dosage: ONCE DAILY FOR 2 DAYS
  2. CETIRIZINE [Suspect]
     Active Substance: CETIRIZINE HYDROCHLORIDE
     Indication: RASH PRURITIC
     Dosage: TOOK A THIRD DOSE ON DAY 5

REACTIONS (2)
  - Substance-induced psychotic disorder [Recovered/Resolved]
  - Disease recurrence [Recovered/Resolved]
